FAERS Safety Report 18596933 (Version 4)
Quarter: 2021Q1

REPORT INFORMATION
  Report Type: Report from Study
  Country: US (occurrence: US)
  Receive Date: 20201209
  Receipt Date: 20210127
  Transmission Date: 20210419
  Serious: No
  Sender: FDA-Public Use
  Company Number: NVSC2020US325441

PATIENT
  Sex: Female

DRUGS (1)
  1. COSENTYX [Suspect]
     Active Substance: SECUKINUMAB
     Indication: PSORIATIC ARTHROPATHY
     Dosage: UNK, QMO
     Route: 058

REACTIONS (4)
  - Blister [Unknown]
  - Psoriasis [Unknown]
  - Drug ineffective [Unknown]
  - Hypersensitivity [Unknown]
